FAERS Safety Report 24686431 (Version 2)
Quarter: 2024Q4

REPORT INFORMATION
  Report Type: Spontaneous
  Country: CA (occurrence: CA)
  Receive Date: 20241202
  Receipt Date: 20241213
  Transmission Date: 20250115
  Serious: Yes (Death)
  Sender: TEVA
  Company Number: CA-TEVA-VS-3269696

PATIENT
  Age: 31 Year
  Sex: Male

DRUGS (6)
  1. CISPLATIN [Suspect]
     Active Substance: CISPLATIN
     Indication: Osteosarcoma
     Dosage: 6 CYCLES
     Route: 065
  2. ETOPOSIDE [Suspect]
     Active Substance: ETOPOSIDE
     Indication: Rhabdomyosarcoma
     Dosage: 2 CYCLES
     Route: 065
  3. ALECTINIB [Suspect]
     Active Substance: ALECTINIB
     Indication: Rhabdomyosarcoma
     Route: 048
  4. REGORAFENIB [Suspect]
     Active Substance: REGORAFENIB
     Indication: Rhabdomyosarcoma
     Dosage: FOR 21?DAYS WITH 7?DAYS OFF; TWO CYCLES
     Route: 048
  5. IFOSFAMIDE [Suspect]
     Active Substance: IFOSFAMIDE
     Indication: Rhabdomyosarcoma
     Dosage: 2 CYCLES
     Route: 065
  6. DOXORUBICIN [Suspect]
     Active Substance: DOXORUBICIN
     Indication: Osteosarcoma
     Dosage: 6 CYCLES
     Route: 065

REACTIONS (3)
  - Drug ineffective [Fatal]
  - Toxicity to various agents [Unknown]
  - Mucosal inflammation [Unknown]
